FAERS Safety Report 9434953 (Version 1)
Quarter: 2013Q3

REPORT INFORMATION
  Report Type: Spontaneous
  Country: GB (occurrence: None)
  Receive Date: 20130730
  Receipt Date: 20130730
  Transmission Date: 20140515
  Serious: Yes (Other)
  Sender: FDA-Public Use
  Company Number: 2013GMK006292

PATIENT
  Age: 67 Year
  Sex: Male

DRUGS (3)
  1. ROPINIROLE [Suspect]
     Indication: PARKINSON^S DISEASE
     Dosage: 4MG QD, ORAL
     Route: 048
     Dates: start: 2012
  2. CO-CARELDOPA (CARBIDOPA, LEVODOPA) [Concomitant]
  3. SELEGILIINE (SELEGILINE) [Concomitant]

REACTIONS (3)
  - Parkinsonian crisis [None]
  - Withdrawal syndrome [None]
  - Hypotension [None]
